FAERS Safety Report 7996225-9 (Version None)
Quarter: 2011Q4

REPORT INFORMATION
  Report Type: 
  Country: None (occurrence: None)
  Receive Date: 20111220
  Receipt Date: 20111214
  Transmission Date: 20120403
  Serious: No
  Sender: FDA-Public Use
  Company Number: US-B.I. PHARMACEUTICALS,INC./RIDGEFIELD-2011-BP-28136BP

PATIENT
  Sex: Female

DRUGS (7)
  1. SOTALOL HCL [Concomitant]
     Indication: ATRIAL FIBRILLATION
  2. FUROSEMIDE [Concomitant]
     Indication: FLUID RETENTION
  3. POTASSIUM [Concomitant]
     Indication: ELECTROLYTE SUBSTITUTION THERAPY
  4. PRADAXA [Suspect]
     Indication: ATRIAL FIBRILLATION
     Dosage: 300 MG
     Route: 048
     Dates: start: 20111028
  5. SYNTHROID [Concomitant]
     Indication: HYPOTHYROIDISM
  6. MULTIPLE VITAMIN [Concomitant]
     Indication: PROPHYLAXIS
  7. FISH OIL [Concomitant]
     Indication: PROPHYLAXIS

REACTIONS (2)
  - FLATULENCE [None]
  - HEADACHE [None]
